FAERS Safety Report 6999617-X (Version None)
Quarter: 2010Q3

REPORT INFORMATION
  Report Type: 
  Country: None (occurrence: None)
  Receive Date: 20100920
  Receipt Date: 20091005
  Transmission Date: 20110219
  Serious: Yes (Hospitalization)
  Sender: FDA-Public Use
  Company Number: US-ASTRAZENECA-2009UW15834

PATIENT
  Age: 15783 Day
  Sex: Female
  Weight: 47.6 kg

DRUGS (4)
  1. SEROQUEL XR [Suspect]
     Route: 048
     Dates: start: 20090428
  2. SEDATIVE [Concomitant]
  3. AMBIEN [Concomitant]
     Indication: SLEEP DISORDER THERAPY
     Route: 048
     Dates: start: 20080825
  4. STROVITE FORTE [Concomitant]
     Indication: VITAMIN SUPPLEMENTATION
     Route: 048

REACTIONS (2)
  - BLOOD CREATINE PHOSPHOKINASE INCREASED [None]
  - NEUROLEPTIC MALIGNANT SYNDROME [None]
